FAERS Safety Report 8120606-6 (Version None)
Quarter: 2012Q1

REPORT INFORMATION
  Report Type: 
  Country: None (occurrence: None)
  Receive Date: 20120207
  Receipt Date: 20120206
  Transmission Date: 20120608
  Serious: Yes (Other)
  Sender: FDA-Public Use
  Company Number: US-PFIZER INC-2012032005

PATIENT

DRUGS (2)
  1. ZOLOFT [Suspect]
     Dosage: 25 MG, UNK
  2. METHOTREXATE [Interacting]
     Indication: ACUTE LYMPHOCYTIC LEUKAEMIA

REACTIONS (3)
  - DRUG CLEARANCE DECREASED [None]
  - ACUTE LYMPHOCYTIC LEUKAEMIA [None]
  - DRUG INTERACTION [None]
